FAERS Safety Report 10861787 (Version 2)
Quarter: 2015Q1

REPORT INFORMATION
  Report Type: Spontaneous
  Country: SI (occurrence: SI)
  Receive Date: 20150224
  Receipt Date: 20150303
  Transmission Date: 20150721
  Serious: Yes (Hospitalization, Other)
  Sender: FDA-Public Use
  Company Number: SI-PFIZER INC-2015067458

PATIENT
  Age: 74 Year
  Sex: Male

DRUGS (13)
  1. AMOKSIKLAV [Concomitant]
     Active Substance: AMOXICILLIN\CLAVULANATE POTASSIUM
  2. SERETIDE [Concomitant]
     Active Substance: FLUTICASONE FUROATE\SALMETEROL XINAFOATE
     Dosage: 125MCG/25MCG
  3. BERODUAL [Concomitant]
     Active Substance: FENOTEROL HYDROBROMIDE\IPRATROPIUM BROMIDE
  4. EDEMID [Concomitant]
  5. CONCOR COR [Concomitant]
     Active Substance: BISOPROLOL FUMARATE
  6. NITRO-DUR [Concomitant]
     Active Substance: NITROGLYCERIN
  7. LANITOP [Concomitant]
     Active Substance: METILDIGOXIN
  8. LACIPIL [Concomitant]
     Active Substance: LACIDIPINE
     Dosage: 4 MG, UNK
  9. KALINOR [Concomitant]
     Active Substance: POTASSIUM CITRATE
     Dosage: UNK
     Dates: start: 20150129, end: 20150204
  10. MEDROL [Suspect]
     Active Substance: METHYLPREDNISOLONE
     Indication: CHRONIC OBSTRUCTIVE PULMONARY DISEASE
     Dosage: 64 MG, DAILY
     Route: 048
     Dates: start: 20150129, end: 20150202
  11. APAURIN [Concomitant]
     Active Substance: DIAZEPAM
  12. PANTOPRAZOLE [Concomitant]
     Active Substance: PANTOPRAZOLE SODIUM
  13. TAMIFLU [Concomitant]
     Active Substance: OSELTAMIVIR PHOSPHATE

REACTIONS (1)
  - Delirium [Recovered/Resolved]

NARRATIVE: CASE EVENT DATE: 20150201
